FAERS Safety Report 9610591 (Version 3)
Quarter: 2014Q2

REPORT INFORMATION
  Report Type: Spontaneous
  Country: FR (occurrence: FR)
  Receive Date: 20131009
  Receipt Date: 20140504
  Transmission Date: 20141212
  Serious: Yes (Hospitalization)
  Sender: FDA-Public Use
  Company Number: FR-BRISTOL-MYERS SQUIBB COMPANY-19472489

PATIENT
  Age: 38 Year
  Sex: Female

DRUGS (8)
  1. ABILIFY TABS 15 MG [Suspect]
     Indication: PSYCHOTIC DISORDER
     Route: 048
  2. VARNOLINE [Suspect]
     Indication: ORAL CONTRACEPTION
     Route: 048
     Dates: start: 2010
  3. NEULEPTIL [Suspect]
     Indication: PSYCHOTIC DISORDER
     Dosage: STRENGTH:40 MG/ML
     Route: 048
  4. THERALENE [Concomitant]
     Dosage: THERALENE 40MG/ML
     Route: 048
  5. EFFEXOR [Concomitant]
     Route: 048
  6. IMOVANE [Concomitant]
     Route: 048
  7. NOCTAMIDE [Concomitant]
     Dosage: TABS
     Route: 048
  8. VALIUM [Concomitant]
     Route: 048

REACTIONS (2)
  - Pulmonary embolism [Recovering/Resolving]
  - Deep vein thrombosis [Recovered/Resolved]
